FAERS Safety Report 11051457 (Version 1)
Quarter: 2015Q2

REPORT INFORMATION
  Report Type: Spontaneous
  Country: IT (occurrence: IT)
  Receive Date: 20150421
  Receipt Date: 20150421
  Transmission Date: 20150821
  Serious: Yes (Hospitalization)
  Sender: FDA-Public Use
  Company Number: IT-WATSON-2015-08125

PATIENT
  Age: 50 Year
  Sex: Female

DRUGS (2)
  1. KETOROLAC [Suspect]
     Active Substance: KETOROLAC\KETOROLAC TROMETHAMINE
     Indication: FIBROMYALGIA
     Dosage: 1 DF, TOTAL
     Route: 048
     Dates: start: 20150115, end: 20150115
  2. SIRDALUD [Suspect]
     Active Substance: TIZANIDINE
     Indication: FIBROMYALGIA
     Dosage: 1 DF, TOTAL
     Route: 048
     Dates: start: 20150115, end: 20150115

REACTIONS (5)
  - Hyperglycaemia [Recovered/Resolved]
  - Acute respiratory failure [Recovered/Resolved]
  - Hypothermia [Recovered/Resolved]
  - Urticaria [Recovered/Resolved]
  - Syncope [Recovered/Resolved]

NARRATIVE: CASE EVENT DATE: 20150116
